FAERS Safety Report 5670221-9 (Version None)
Quarter: 2008Q1

REPORT INFORMATION
  Report Type: 
  Country: None (occurrence: None)
  Receive Date: 20080314
  Receipt Date: 20080314
  Transmission Date: 20080703
  Serious: No
  Sender: FDA-Public Use
  Company Number: None

PATIENT

DRUGS (1)
  1. METFORMIN HCL [Suspect]
     Dosage: 500MG 1 QID PO
     Route: 048
     Dates: start: 20050101

REACTIONS (1)
  - DIARRHOEA [None]
